FAERS Safety Report 6981215-5 (Version None)
Quarter: 2010Q3

REPORT INFORMATION
  Report Type: 
  Country: None (occurrence: None)
  Receive Date: 20100914
  Receipt Date: 20100902
  Transmission Date: 20110219
  Serious: Yes (Other)
  Sender: FDA-Public Use
  Company Number: US-PFIZER INC-2010083006

PATIENT
  Sex: Male

DRUGS (3)
  1. CHANTIX [Suspect]
     Indication: SMOKING CESSATION THERAPY
     Dosage: UNK
     Dates: start: 20080701, end: 20080801
  2. LORTAB [Concomitant]
     Indication: BACK INJURY
     Dosage: UNK
     Dates: start: 20010101
  3. SOMA [Concomitant]
     Indication: BACK INJURY
     Dosage: UNK
     Dates: start: 20010101

REACTIONS (6)
  - AGGRESSION [None]
  - ANXIETY [None]
  - DEPRESSION [None]
  - MENTAL DISORDER [None]
  - NIGHTMARE [None]
  - SUICIDAL IDEATION [None]
